FAERS Safety Report 9425175 (Version 1)
Quarter: 2013Q3

REPORT INFORMATION
  Report Type: Spontaneous
  Country: US (occurrence: US)
  Receive Date: 20130729
  Receipt Date: 20130729
  Transmission Date: 20140515
  Serious: No
  Sender: FDA-Public Use
  Company Number: US-PFIZER INC-2013215170

PATIENT
  Sex: 0

DRUGS (1)
  1. CHILDREN^S MOTRIN COLD ORIGINAL BERRY FLAVOR [Suspect]
     Dosage: UNK

REACTIONS (3)
  - Intentional drug misuse [Unknown]
  - Dysgeusia [Unknown]
  - Product taste abnormal [Unknown]
